FAERS Safety Report 8590096 (Version 2)
Quarter: 2013Q2

REPORT INFORMATION
  Report Type: Spontaneous
  Country: US (occurrence: US)
  Receive Date: 20120601
  Receipt Date: 20130628
  Transmission Date: 20140414
  Serious: Yes (Disabling)
  Sender: FDA-Public Use
  Company Number: US-ASTRAZENECA-2012SE34590

PATIENT
  Age: 53 Year
  Sex: Female

DRUGS (4)
  1. NEXIUM [Suspect]
     Indication: GASTROOESOPHAGEAL REFLUX DISEASE
     Dosage: THREE TIMES A DAY
     Route: 048
     Dates: start: 2000
  2. NEXIUM [Suspect]
     Indication: GASTROINTESTINAL DISORDER
     Dosage: THREE TIMES A DAY
     Route: 048
     Dates: start: 2000
  3. PRILOSEC [Suspect]
     Indication: GASTROINTESTINAL DISORDER
     Route: 048
  4. PREVACID [Concomitant]
     Indication: GASTROINTESTINAL DISORDER

REACTIONS (5)
  - Pain in extremity [Unknown]
  - Osteoporosis [Unknown]
  - Multiple fractures [Unknown]
  - Arthritis [Unknown]
  - Arthralgia [Unknown]
